FAERS Safety Report 8084986-2 (Version None)
Quarter: 2012Q1

REPORT INFORMATION
  Report Type: 
  Country: None (occurrence: None)
  Receive Date: 20120128
  Receipt Date: 20110330
  Transmission Date: 20120608
  Serious: No
  Sender: FDA-Public Use
  Company Number: US-ABBOTT-11P-163-0715911-00

PATIENT
  Sex: Female
  Weight: 74.002 kg

DRUGS (2)
  1. HUMIRA [Suspect]
     Indication: PSORIASIS
     Route: 058
     Dates: start: 20110101
  2. HUMIRA [Suspect]
     Indication: ARTHRITIS
     Dosage: STARTER DOSE OF 80MG ON DAY ONE.
     Route: 058
     Dates: start: 20110101, end: 20110101

REACTIONS (5)
  - INJECTION SITE WARMTH [None]
  - INJECTION SITE NODULE [None]
  - INJECTION SITE VESICLES [None]
  - PSORIASIS [None]
  - INJECTION SITE PRURITUS [None]
